FAERS Safety Report 4527829-3 (Version None)
Quarter: 2004Q4

REPORT INFORMATION
  Report Type: 
  Country: None (occurrence: None)
  Receive Date: 20041123
  Receipt Date: 20040108
  Transmission Date: 20050328
  Serious: Yes (Hospitalization)
  Sender: FDA-Public Use
  Company Number: ATO-04-0030

PATIENT
  Age: 75 Year
  Sex: Male
  Weight: 70.3075 kg

DRUGS (21)
  1. TRISENOX [Suspect]
     Indication: MULTIPLE MYELOMA
     Dosage: 17-18MG (18 MG, 4 DOSE
     Dates: start: 20031110, end: 20040105
  2. VITAMIN C [Suspect]
     Indication: MULTIPLE MYELOMA
     Dosage: 1000 MG (1 GM, 2X/WK), IVI
     Route: 042
     Dates: start: 20031110, end: 20040105
  3. MELPHALAN [Suspect]
     Indication: MULTIPLE MYELOMA
     Dosage: 7MG (7 MG, QD X4 DAYS), ORAL
     Route: 048
     Dates: start: 20031110, end: 20031226
  4. OXYCONTIN [Concomitant]
  5. PRILOSEC [Concomitant]
  6. LASIX [Concomitant]
  7. COUMADIN [Concomitant]
  8. CALCITRIOL [Concomitant]
  9. TOPAMAX [Concomitant]
  10. CALCITRATE-D [Concomitant]
  11. MIACALCIN [Concomitant]
  12. NAHCO3 [Concomitant]
  13. COLACE [Concomitant]
  14. K-DUR [Concomitant]
  15. PRAVACHOL [Concomitant]
  16. M.V.I. [Concomitant]
  17. COMPAZINE [Concomitant]
  18. ARANESP [Concomitant]
  19. ZOFRAN [Concomitant]
  20. NEUPOGEN [Concomitant]
  21. LACTULOSE [Concomitant]

REACTIONS (5)
  - ANAEMIA [None]
  - CHEST PAIN [None]
  - DEHYDRATION [None]
  - FEBRILE NEUTROPENIA [None]
  - HYPOTENSION [None]
